FAERS Safety Report 13216070 (Version 1)
Quarter: 2017Q1

REPORT INFORMATION
  Report Type: Spontaneous
  Country: US (occurrence: US)
  Receive Date: 20170210
  Receipt Date: 20170210
  Transmission Date: 20170428
  Serious: Yes (Hospitalization, Other)
  Sender: FDA-Public Use
  Company Number: US-BRISTOL-MYERS SQUIBB COMPANY-BMS-2017-009533

PATIENT
  Age: 61 Year
  Sex: Female
  Weight: 56.6 kg

DRUGS (1)
  1. OPDIVO [Suspect]
     Active Substance: NIVOLUMAB
     Indication: NON-SMALL CELL LUNG CANCER
     Dosage: UNK
     Route: 065
     Dates: start: 201610

REACTIONS (5)
  - Pain in extremity [Unknown]
  - Paraesthesia [Unknown]
  - Seizure [Unknown]
  - Central nervous system infection [Unknown]
  - Back pain [Unknown]
